FAERS Safety Report 13335464 (Version 1)
Quarter: 2017Q1

REPORT INFORMATION
  Report Type: Spontaneous
  Country: US (occurrence: US)
  Receive Date: 20170315
  Receipt Date: 20170315
  Transmission Date: 20170428
  Serious: No
  Sender: FDA-Public Use
  Company Number: US-B.I. PHARMACEUTICALS,INC./RIDGEFIELD-2017-BI-013916

PATIENT
  Age: 90 Year
  Sex: Male

DRUGS (2)
  1. ELIGAURD [Concomitant]
     Indication: PROSTATE CANCER
     Route: 065
  2. COMBIVENT [Suspect]
     Active Substance: ALBUTEROL SULFATE\IPRATROPIUM BROMIDE
     Indication: PRODUCT USED FOR UNKNOWN INDICATION
     Dosage: QID;  FORM STRENGTH: 20 MCG / 100 MCG; FORMULATION: INHALATION SPRAY? ADMINISTRATION CORRECT? YES ?A
     Route: 055
     Dates: start: 201702

REACTIONS (1)
  - Nerve injury [Not Recovered/Not Resolved]

NARRATIVE: CASE EVENT DATE: 20170302
